FAERS Safety Report 19298374 (Version 1)
Quarter: 2021Q2

REPORT INFORMATION
  Report Type: Spontaneous
  Country: JP (occurrence: JP)
  Receive Date: 20210524
  Receipt Date: 20210524
  Transmission Date: 20210717
  Serious: Yes (Hospitalization)
  Sender: FDA-Public Use
  Company Number: JP-EXELIXIS-CABO-21040476

PATIENT
  Age: 74 Year
  Sex: Male

DRUGS (4)
  1. CABOMETYX [Suspect]
     Active Substance: CABOZANTINIB S-MALATE
     Indication: HEPATOCELLULAR CARCINOMA
     Dosage: 40 MG, QD
     Route: 048
     Dates: start: 20210405, end: 20210425
  2. CABOMETYX [Suspect]
     Active Substance: CABOZANTINIB S-MALATE
     Dosage: 20 MG, QD
     Route: 048
     Dates: start: 20210426
  3. GLIMICRON [Suspect]
     Active Substance: GLICLAZIDE
     Indication: DIABETES MELLITUS
     Dosage: UNK
     Route: 065
  4. GLACTIV [Suspect]
     Active Substance: SITAGLIPTIN
     Indication: DIABETES MELLITUS
     Dosage: UNK
     Route: 065

REACTIONS (3)
  - Hypoglycaemia [Recovered/Resolved]
  - Decreased appetite [Unknown]
  - Malaise [Not Recovered/Not Resolved]

NARRATIVE: CASE EVENT DATE: 20210410
